FAERS Safety Report 17873938 (Version 3)
Quarter: 2021Q1

REPORT INFORMATION
  Report Type: Spontaneous
  Country: RO (occurrence: RO)
  Receive Date: 20200609
  Receipt Date: 20210126
  Transmission Date: 20210419
  Serious: Yes (Other)
  Sender: FDA-Public Use
  Company Number: RO-SA-2020SA146561

PATIENT
  Age: 73 Year
  Sex: Female

DRUGS (7)
  1. XYZAL [Suspect]
     Active Substance: LEVOCETIRIZINE DIHYDROCHLORIDE
     Indication: FOOD ALLERGY
     Dosage: 5 MG, QD IN THE EVENING
  2. ASTHA [CHLORPHENAMINE MALEATE;LIDOCAINE HYDROCHLORIDE;MENTHOL;MESULFEN [Concomitant]
  3. AERIUS (DESLORATADINE) [Concomitant]
     Active Substance: DESLORATADINE
     Dosage: UNK
  4. RINOCORT [Concomitant]
  5. NASONEX [Concomitant]
     Active Substance: MOMETASONE FUROATE
  6. DYMISTA [Concomitant]
     Active Substance: AZELASTINE HYDROCHLORIDE\FLUTICASONE PROPIONATE
  7. CLARITINE [Concomitant]
     Active Substance: LORATADINE
     Dosage: UNK

REACTIONS (9)
  - Suffocation feeling [Unknown]
  - Dyspnoea [Unknown]
  - Rhinitis [Unknown]
  - Drug ineffective for unapproved indication [Unknown]
  - Product use in unapproved indication [Unknown]
  - Drug ineffective [Unknown]
  - Nasal dryness [Unknown]
  - Paralysis [Unknown]
  - Hypersensitivity [Unknown]
